FAERS Safety Report 24023133 (Version 4)
Quarter: 2024Q3

REPORT INFORMATION
  Report Type: Report from Study
  Country: CN (occurrence: CN)
  Receive Date: 20240627
  Receipt Date: 20240710
  Transmission Date: 20241017
  Serious: No
  Sender: ROCHE
  Company Number: CN-ROCHE-3126955

PATIENT
  Age: 64 Year
  Sex: Female
  Weight: 50.0 kg

DRUGS (30)
  1. ALECTINIB [Suspect]
     Active Substance: ALECTINIB
     Indication: Non-small cell lung cancer metastatic
     Route: 048
     Dates: start: 20210929
  2. ALECTINIB [Suspect]
     Active Substance: ALECTINIB
     Route: 048
     Dates: start: 20200926
  3. HEART TREASURE PILL [Concomitant]
     Indication: Sinus bradycardia
     Route: 048
     Dates: start: 20210928, end: 20220411
  4. URSODIOL [Concomitant]
     Active Substance: URSODIOL
     Route: 048
     Dates: start: 20210927
  5. ZOLEDRONIC ACID [Concomitant]
     Active Substance: ZOLEDRONIC ACID
     Indication: Metastases to bone
     Route: 050
     Dates: start: 20220317, end: 20220317
  6. ZOLEDRONIC ACID [Concomitant]
     Active Substance: ZOLEDRONIC ACID
     Dosage: LIQUID
     Route: 050
     Dates: start: 202207, end: 202209
  7. ZOLEDRONIC ACID [Concomitant]
     Active Substance: ZOLEDRONIC ACID
     Route: 050
     Dates: start: 202204, end: 202206
  8. ZOLEDRONIC ACID [Concomitant]
     Active Substance: ZOLEDRONIC ACID
     Dosage: PRN, TREATMENT OF BONE METASTASES
     Route: 050
     Dates: start: 20221010, end: 20221010
  9. ZOLEDRONIC ACID [Concomitant]
     Active Substance: ZOLEDRONIC ACID
     Dosage: PRN, TREATMENT OF BONE METASTASES
     Route: 050
     Dates: start: 20221103, end: 20221103
  10. ZOLEDRONIC ACID [Concomitant]
     Active Substance: ZOLEDRONIC ACID
     Dosage: PRN, TREATMENT OF BONE METASTASES
     Route: 050
     Dates: start: 20221130, end: 20221130
  11. ZOLEDRONIC ACID [Concomitant]
     Active Substance: ZOLEDRONIC ACID
     Dosage: PRN, TREATMENT OF BONE METASTASES
     Route: 050
     Dates: start: 20220412, end: 20220412
  12. ZOLEDRONIC ACID [Concomitant]
     Active Substance: ZOLEDRONIC ACID
     Dosage: PRN, TREATMENT OF BONE METASTASES
     Route: 050
     Dates: start: 20220529, end: 20220529
  13. ZOLEDRONIC ACID [Concomitant]
     Active Substance: ZOLEDRONIC ACID
     Dosage: FREQUENCY TEXT:PRN
     Route: 050
     Dates: start: 20230129, end: 20230129
  14. ZOLEDRONIC ACID [Concomitant]
     Active Substance: ZOLEDRONIC ACID
     Dosage: FREQUENCY TEXT:PRN
     Route: 050
     Dates: start: 20230223, end: 20230223
  15. MANNATIDE [Concomitant]
     Route: 050
     Dates: start: 20220317, end: 20220318
  16. MANNATIDE [Concomitant]
     Route: 050
     Dates: start: 20220317, end: 20220319
  17. MANNATIDE [Concomitant]
     Route: 050
     Dates: start: 20220615, end: 20220616
  18. MANNATIDE [Concomitant]
     Dates: start: 20220713, end: 20220715
  19. METOCLOPRAMIDE [Concomitant]
     Active Substance: METOCLOPRAMIDE
     Indication: Vomiting
     Route: 050
     Dates: start: 20220412, end: 20220413
  20. METOCLOPRAMIDE [Concomitant]
     Active Substance: METOCLOPRAMIDE
     Route: 048
     Dates: start: 20220413, end: 20220414
  21. METOCLOPRAMIDE [Concomitant]
     Active Substance: METOCLOPRAMIDE
     Route: 050
     Dates: start: 20220529, end: 20220529
  22. COMPOUND KUSHEN INJECTION [Concomitant]
     Route: 050
     Dates: start: 20220412, end: 20220413
  23. HEPARIN SODIUM [Concomitant]
     Active Substance: HEPARIN SODIUM
     Route: 050
     Dates: start: 20220518, end: 20220520
  24. FRUCTOSE\GLYCERIN\SODIUM CHLORIDE [Concomitant]
     Active Substance: FRUCTOSE\GLYCERIN\SODIUM CHLORIDE
     Indication: Dizziness
     Route: 050
     Dates: start: 20220517, end: 20220519
  25. VITAMIN C [Concomitant]
     Active Substance: ASCORBIC ACID
     Route: 050
     Dates: start: 20220413, end: 20220413
  26. VITAMIN C [Concomitant]
     Active Substance: ASCORBIC ACID
     Route: 050
     Dates: start: 20230321, end: 20230322
  27. VITAMIN B6 [Concomitant]
     Active Substance: PYRIDOXINE HYDROCHLORIDE
     Route: 050
     Dates: start: 20220413, end: 20220413
  28. VITAMIN B6 [Concomitant]
     Active Substance: PYRIDOXINE HYDROCHLORIDE
     Route: 050
     Dates: start: 20230321, end: 20230322
  29. POTASSIUM CHLORIDE [Concomitant]
     Active Substance: POTASSIUM CHLORIDE
     Route: 050
     Dates: start: 20220413, end: 20220413
  30. DEXAMETHASONE [Concomitant]
     Active Substance: DEXAMETHASONE
     Route: 050
     Dates: start: 20220616, end: 20220616

REACTIONS (2)
  - Blood bilirubin increased [Recovered/Resolved]
  - Sinus bradycardia [Recovered/Resolved]

NARRATIVE: CASE EVENT DATE: 20220317
